FAERS Safety Report 18297031 (Version 1)
Quarter: 2020Q3

REPORT INFORMATION
  Report Type: Report from Study
  Country: None (occurrence: IT)
  Receive Date: 20200922
  Receipt Date: 20200922
  Transmission Date: 20201103
  Serious: Yes (Other)
  Sender: FDA-Public Use
  Company Number: IT-ABBVIE-20K-083-3573597-00

PATIENT
  Sex: Female

DRUGS (2)
  1. DUODOPA [Suspect]
     Active Substance: CARBIDOPA\LEVODOPA
  2. DUODOPA [Suspect]
     Active Substance: CARBIDOPA\LEVODOPA
     Indication: PARKINSON^S DISEASE
     Dosage: MD: 6+3;  CR: 3,1 (14H);  ED: 3
     Route: 050
     Dates: start: 20190709

REACTIONS (4)
  - Decubitus ulcer [Unknown]
  - General physical health deterioration [Unknown]
  - Urinary tract infection [Unknown]
  - Bone disorder [Unknown]

NARRATIVE: CASE EVENT DATE: 2020
